FAERS Safety Report 21341860 (Version 1)
Quarter: 2022Q3

REPORT INFORMATION
  Report Type: Spontaneous
  Country: US (occurrence: US)
  Receive Date: 20220916
  Receipt Date: 20220916
  Transmission Date: 20221026
  Serious: Yes (Other)
  Sender: FDA-Public Use
  Company Number: US-TEVA-2022-US-2072402

PATIENT

DRUGS (2)
  1. CLONAZEPAM [Suspect]
     Active Substance: CLONAZEPAM
     Indication: Anxiety
     Dosage: TOOK 0.250 OR 2 QUARTERS OF A PILL A DAY
     Route: 065
     Dates: start: 2022
  2. CLONAZEPAM [Suspect]
     Active Substance: CLONAZEPAM
     Indication: Balance disorder

REACTIONS (4)
  - Depression [Unknown]
  - Constipation [Unknown]
  - Product prescribing issue [Unknown]
  - Wrong technique in product usage process [Unknown]

NARRATIVE: CASE EVENT DATE: 20220101
